FAERS Safety Report 6041750-3 (Version None)
Quarter: 2009Q1

REPORT INFORMATION
  Report Type: 
  Country: None (occurrence: None)
  Receive Date: 20090116
  Receipt Date: 20090107
  Transmission Date: 20090719
  Serious: Yes (Death, Life-Threatening)
  Sender: FDA-Public Use
  Company Number: JP-PFIZER INC-2008150810

PATIENT

DRUGS (3)
  1. CELECOX [Suspect]
     Dosage: 200 MG, 1X/DAY
     Route: 048
  2. LORCAM [Suspect]
     Route: 048
  3. TERNELIN [Concomitant]
     Route: 048

REACTIONS (1)
  - DRUG RASH WITH EOSINOPHILIA AND SYSTEMIC SYMPTOMS [None]
